FAERS Safety Report 8767200 (Version 2)
Quarter: 2012Q4

REPORT INFORMATION
  Report Type: 
  Country: US (occurrence: US)
  Receive Date: 20120904
  Receipt Date: 20120924
  Transmission Date: 20130627
  Serious: No
  Sender: FDA-Public Use
  Company Number: US-JNJFOC-20120810294

PATIENT
  Age: 80 Year
  Sex: Female
  Weight: 68.04 kg

DRUGS (2)
  1. SANDOZ FENTANYL TRANSDERMAL SYSTEM [Suspect]
     Indication: PERONEAL MUSCULAR ATROPHY
     Route: 062
     Dates: start: 201207
  2. FENTANYL TRASDERMAL SYSTEM [Suspect]
     Indication: PRODUCT USED FOR UNKNOWN INDICATION
     Route: 062

REACTIONS (5)
  - Feeling hot [Recovered/Resolved]
  - Musculoskeletal pain [Recovered/Resolved]
  - Insomnia [Recovered/Resolved]
  - Drug dose omission [Recovered/Resolved]
  - Pain in extremity [Recovered/Resolved]
